FAERS Safety Report 8230261-2 (Version None)
Quarter: 2012Q1

REPORT INFORMATION
  Report Type: 
  Country: None (occurrence: None)
  Receive Date: 20120307
  Receipt Date: 20090722
  Transmission Date: 20120608
  Serious: Yes (Other)
  Sender: FDA-Public Use
  Company Number: PHEH2009US08038

PATIENT
  Age: 63 Year
  Sex: Female
  Weight: 65.3 kg

DRUGS (1)
  1. AFINITOR [Suspect]
     Indication: RENAL CELL CARCINOMA
     Dosage: 10 MG, QD, ORAL
     Route: 048
     Dates: start: 20090714, end: 20090722

REACTIONS (6)
  - ANGIOEDEMA [None]
  - LIP SWELLING [None]
  - MALAISE [None]
  - HYPERSENSITIVITY [None]
  - NAUSEA [None]
  - LETHARGY [None]
